FAERS Safety Report 6024162-8 (Version None)
Quarter: 2008Q4

REPORT INFORMATION
  Report Type: 
  Country: None (occurrence: None)
  Receive Date: 20081230
  Receipt Date: 20081219
  Transmission Date: 20090506
  Serious: Yes (Death)
  Sender: FDA-Public Use
  Company Number: DE-PFIZER INC-2008159178

PATIENT

DRUGS (2)
  1. CELEBREX [Suspect]
     Indication: POLYARTHRITIS
     Dosage: 100 MG, DAILY
     Route: 048
     Dates: start: 20070701, end: 20080127
  2. ALISKIREN [Suspect]
     Indication: HYPERTENSION
     Dosage: 300 MG, DAILY
     Route: 048
     Dates: start: 20080115, end: 20080127

REACTIONS (3)
  - CIRCULATORY COLLAPSE [None]
  - CYANOSIS [None]
  - SUDDEN DEATH [None]
